FAERS Safety Report 20985281 (Version 1)
Quarter: 2022Q2

REPORT INFORMATION
  Report Type: Spontaneous
  Country: GB (occurrence: GB)
  Receive Date: 20220621
  Receipt Date: 20220621
  Transmission Date: 20220721
  Serious: Yes (Other)
  Sender: FDA-Public Use
  Company Number: GB-MHRA-MED-202206080608087340-HJBDZ

PATIENT
  Age: 41 Year
  Sex: Male
  Weight: 98 kg

DRUGS (3)
  1. SILDENAFIL [Suspect]
     Active Substance: SILDENAFIL
     Indication: Erectile dysfunction
     Dosage: UNK (50MG WHEN REQUIRED)
     Route: 065
     Dates: start: 20211027
  2. COCODAMOL [Concomitant]
     Active Substance: ACETAMINOPHEN\CODEINE PHOSPHATE
     Indication: Back pain
     Dosage: UNK
     Route: 065
     Dates: start: 2013
  3. PREGABALIN [Concomitant]
     Active Substance: PREGABALIN
     Indication: Intervertebral disc protrusion
     Dosage: UNK
     Route: 065
     Dates: start: 2014

REACTIONS (1)
  - Urinary incontinence [Not Recovered/Not Resolved]

NARRATIVE: CASE EVENT DATE: 20211111
